FAERS Safety Report 7917493-5 (Version None)
Quarter: 2011Q4

REPORT INFORMATION
  Report Type: 
  Country: None (occurrence: None)
  Receive Date: 20111116
  Receipt Date: 20111011
  Transmission Date: 20120403
  Serious: Yes (Hospitalization, Other)
  Sender: FDA-Public Use
  Company Number: CA-ROCHE-692974

PATIENT
  Sex: Female
  Weight: 57.7 kg

DRUGS (27)
  1. CARBOPLATIN [Suspect]
     Indication: BREAST CANCER
     Dosage: DOSE LEVEL: 6 AUC, FORM: VIALS, LAST DOSE:09 MARCH . THE THERAPY WAS HOLD ON 11 MAY 2010.
     Route: 042
     Dates: start: 20100309, end: 20100511
  2. DIOVAN [Concomitant]
  3. ASPIRIN [Concomitant]
  4. HERCEPTIN [Suspect]
     Dosage: MAINTENANCE DOSE, DOSE LEVEL:8 MG/KG, FORM: VIALS
     Route: 042
  5. AMLODIPINE [Concomitant]
  6. NORVASC [Concomitant]
  7. ZOFRAN [Concomitant]
     Dates: start: 20100309, end: 20100624
  8. AVASTIN [Suspect]
     Dosage: DATE OF LAST DOSE PRIOR TO SAE: 22 JUNE 2010
     Route: 042
  9. HERCEPTIN [Suspect]
     Indication: BREAST CANCER
     Dosage: LOADING DOSE. DOSE FORM:VIAL
     Route: 042
     Dates: start: 20100309, end: 20100311
  10. CARBOPLATIN [Suspect]
     Dosage: DATE OF LAST DOSE PRIOR TO SAE: 22 JUNE 2010.PERMANENTLY DISCONTINUED.
     Route: 042
  11. PROCHLORPERAZINE [Concomitant]
  12. AVASTIN [Suspect]
     Indication: BREAST CANCER
     Dosage: DOSE LEVEL:15 MG/KG, FORM: VIALS
     Route: 042
     Dates: start: 20100309, end: 20100511
  13. HERCEPTIN [Suspect]
     Dosage: DATE OF LAST DOSE PRIOR TO SAE: 22 JUNE 2010. DOSE LEVEL: 6 MG/KG.
     Route: 042
  14. CARBOPLATIN [Suspect]
     Route: 042
  15. DOCETAXEL [Suspect]
     Dosage: DATE OF LAST DOSE PRIOR TO SAE: 22 JUNE 2010.PERMANENTLY DISCONTINUED.
     Route: 042
  16. DECADRON [Concomitant]
     Dates: start: 20100308, end: 20100624
  17. METOCLOPRAMIDE [Concomitant]
  18. HERCEPTIN [Suspect]
     Route: 042
  19. ACETAMINOPHEN [Concomitant]
  20. AVASTIN [Suspect]
     Route: 042
  21. DOCETAXEL [Suspect]
     Indication: BREAST CANCER
     Dosage: DOSE LEVEL:75 MG/M2, FORM: VIALS, LAST DOSE:09 MARCH 2010. THE THERAPY WAS HOLD IN MAY 2010.
     Route: 042
     Dates: start: 20100309, end: 20100511
  22. DOCETAXEL [Suspect]
     Route: 042
  23. NEUPOGEN [Concomitant]
     Dates: start: 20100310, end: 20100703
  24. HERCEPTIN [Suspect]
     Route: 042
  25. CLONAZEPAM [Concomitant]
  26. CLONAZEPAM [Concomitant]
  27. PRAMIPEXOLE DIHYDROCHLORIDE [Concomitant]

REACTIONS (3)
  - DIARRHOEA [None]
  - CLOSTRIDIAL INFECTION [None]
  - VOMITING [None]
